FAERS Safety Report 21237279 (Version 1)
Quarter: 2022Q3

REPORT INFORMATION
  Report Type: Spontaneous
  Country: US (occurrence: US)
  Receive Date: 20220822
  Receipt Date: 20220822
  Transmission Date: 20221027
  Serious: No
  Sender: FDA-Public Use
  Company Number: US-SA-SAC20220815000780

PATIENT
  Age: 69 Year
  Sex: Female

DRUGS (1)
  1. ENJAYMO [Suspect]
     Active Substance: SUTIMLIMAB-JOME
     Indication: Autoimmune haemolytic anaemia
     Dosage: 6.5 G, QOW
     Route: 042
     Dates: start: 20220527

REACTIONS (1)
  - Bursa injury [Unknown]

NARRATIVE: CASE EVENT DATE: 20220101
